FAERS Safety Report 8346190-X (Version None)
Quarter: 2012Q2

REPORT INFORMATION
  Report Type: 
  Country: None (occurrence: None)
  Receive Date: 20120507
  Receipt Date: 20120501
  Transmission Date: 20120825
  Serious: Yes (Hospitalization)
  Sender: FDA-Public Use
  Company Number: 201205008

PATIENT
  Age: 64 Year
  Sex: Male
  Weight: 86.1834 kg

DRUGS (10)
  1. TESTIM [Suspect]
     Indication: BLOOD TESTOSTERONE DECREASED
     Dosage: 50 MG, 1 1/2 TUBES DAILY, TRANSDERMAL
     Route: 062
     Dates: start: 20120201
  2. ASPIRIN [Concomitant]
  3. ALLOPURINOL [Concomitant]
  4. CITRACAL CALCIUM (CALCIUM CITRATE) [Concomitant]
  5. SIMVASTATIN [Concomitant]
  6. FOSAMAX [Concomitant]
  7. LEXAPRO [Concomitant]
  8. LAMISIL [Suspect]
     Indication: ONYCHOMYCOSIS
     Dates: start: 20120201, end: 20120430
  9. ANDROGEL [Suspect]
  10. NASACORT AQ (TRIAMCINOLONE ACETONIDE) [Concomitant]

REACTIONS (2)
  - POSTOPERATIVE THROMBOSIS [None]
  - NO THERAPEUTIC RESPONSE [None]
